FAERS Safety Report 6549209-1 (Version None)
Quarter: 2010Q1

REPORT INFORMATION
  Report Type: 
  Country: None (occurrence: None)
  Receive Date: 20100119
  Receipt Date: 20100104
  Transmission Date: 20100710
  Serious: Yes (Hospitalization)
  Sender: FDA-Public Use
  Company Number: 2009AC000418

PATIENT
  Age: 72 Year
  Sex: Female

DRUGS (17)
  1. DIGOXIN [Suspect]
     Dosage: 0.125 MG;QD;PO
     Route: 048
  2. ROCEPHIN [Concomitant]
  3. ASPIRIN [Concomitant]
  4. LIMBITROL [Concomitant]
  5. EVISTA [Concomitant]
  6. BENTYL [Concomitant]
  7. COUMADIN [Concomitant]
  8. MICARDIS HCT [Concomitant]
  9. VITAMIN D [Concomitant]
  10. CALCIUM [Concomitant]
  11. OMEPRAZOLE [Concomitant]
  12. FORTICAL [Concomitant]
  13. TYLENOL-500 [Concomitant]
  14. IRON SULFATETHIAMIN COMPOUND TAB [Concomitant]
  15. MULTI-VITAMIN [Concomitant]
  16. MICARDIS [Concomitant]
  17. PRILOSEC [Concomitant]

REACTIONS (32)
  - ABDOMINAL PAIN [None]
  - ANAEMIA OF CHRONIC DISEASE [None]
  - ANHEDONIA [None]
  - ANXIETY [None]
  - AORTIC VALVE INCOMPETENCE [None]
  - ATRIAL FIBRILLATION [None]
  - BACK PAIN [None]
  - BRADYCARDIA [None]
  - COAGULOPATHY [None]
  - DIZZINESS [None]
  - DYSPNOEA [None]
  - ECONOMIC PROBLEM [None]
  - FAMILY STRESS [None]
  - GRANULOMA [None]
  - HILAR LYMPHADENOPATHY [None]
  - HYPERBILIRUBINAEMIA [None]
  - HYPERTENSION [None]
  - INJURY [None]
  - MASS [None]
  - ORTHOSTATIC HYPOTENSION [None]
  - PAIN [None]
  - PALPITATIONS [None]
  - RENAL DISORDER [None]
  - RHABDOMYOLYSIS [None]
  - SOCIAL PROBLEM [None]
  - SURGERY [None]
  - SYNCOPE [None]
  - TACHYCARDIA [None]
  - THERAPEUTIC AGENT TOXICITY [None]
  - URINARY TRACT INFECTION [None]
  - VOMITING [None]
  - WEIGHT DECREASED [None]
